FAERS Safety Report 15884169 (Version 5)
Quarter: 2019Q3

REPORT INFORMATION
  Report Type: Report from Study
  Country: US (occurrence: US)
  Receive Date: 20190129
  Receipt Date: 20190809
  Transmission Date: 20191004
  Serious: Yes (Life-Threatening, Other)
  Sender: FDA-Public Use
  Company Number: PHEH2019US003882

PATIENT
  Sex: Female

DRUGS (2)
  1. COSENTYX [Suspect]
     Active Substance: SECUKINUMAB
     Indication: ANKYLOSING SPONDYLITIS
     Dosage: UNK, QMO
     Route: 058
  2. PLAVIX [Concomitant]
     Active Substance: CLOPIDOGREL BISULFATE
     Indication: PRODUCT USED FOR UNKNOWN INDICATION
     Route: 065

REACTIONS (14)
  - Vitamin D deficiency [Unknown]
  - Mobility decreased [Unknown]
  - Malaise [Unknown]
  - Ankylosing spondylitis [Unknown]
  - Pain [Unknown]
  - Weight decreased [Unknown]
  - Depression [Unknown]
  - Sinusitis [Unknown]
  - Arthralgia [Unknown]
  - Lymphadenopathy [Unknown]
  - Gait disturbance [Unknown]
  - Feeling abnormal [Unknown]
  - Schizophrenia [Unknown]
  - Insomnia [Unknown]
